FAERS Safety Report 8200890-0 (Version None)
Quarter: 2012Q1

REPORT INFORMATION
  Report Type: 
  Country: None (occurrence: None)
  Receive Date: 20120312
  Receipt Date: 20110707
  Transmission Date: 20120608
  Serious: Yes (Other)
  Sender: FDA-Public Use
  Company Number: US-ABBOTT-11P-163-0731706-00

PATIENT
  Sex: Female
  Weight: 62.652 kg

DRUGS (3)
  1. LUPRON DEPOT [Suspect]
     Indication: ENDOMETRIOSIS
     Dates: start: 20101222, end: 20110316
  2. LUPRON DEPOT [Suspect]
     Dates: end: 20110616
  3. UNKNOWN MEDICATION [Concomitant]
     Indication: CONTRACEPTION

REACTIONS (2)
  - HORMONE LEVEL ABNORMAL [None]
  - SUICIDAL IDEATION [None]
